FAERS Safety Report 9373866 (Version 3)
Quarter: 2013Q3

REPORT INFORMATION
  Report Type: Spontaneous
  Country: DZ (occurrence: DZ)
  Receive Date: 20130628
  Receipt Date: 20130708
  Transmission Date: 20140515
  Serious: Yes (Death)
  Sender: FDA-Public Use
  Company Number: DZ-ROCHE-1242388

PATIENT
  Age: 51 Year
  Sex: Male

DRUGS (4)
  1. PEGASYS [Suspect]
     Indication: HEPATITIS C
     Route: 058
     Dates: start: 201304, end: 20130521
  2. PEGASYS [Suspect]
     Route: 058
     Dates: start: 201305
  3. COPEGUS [Suspect]
     Indication: HEPATITIS C
     Route: 048
     Dates: start: 201304, end: 20130521
  4. COPEGUS [Suspect]
     Route: 048
     Dates: start: 201305

REACTIONS (7)
  - Cardiac disorder [Fatal]
  - Cardiac arrest [Fatal]
  - Malaise [Fatal]
  - Hypotension [Fatal]
  - Vomiting [Fatal]
  - Haemoglobin decreased [Fatal]
  - Transaminases increased [Fatal]
